FAERS Safety Report 18039811 (Version 4)
Quarter: 2020Q3

REPORT INFORMATION
  Report Type: Spontaneous
  Country: JP (occurrence: JP)
  Receive Date: 20200717
  Receipt Date: 20200814
  Transmission Date: 20201103
  Serious: Yes (Hospitalization)
  Sender: FDA-Public Use
  Company Number: JP-PFM-2020-16212

PATIENT
  Age: 7 Month
  Sex: Female
  Weight: 9 kg

DRUGS (8)
  1. HEMANGIOL [Suspect]
     Active Substance: PROPRANOLOL HYDROCHLORIDE
     Dosage: 3.2 MG, BID (2/DAY)
     Route: 048
     Dates: start: 20200418
  2. HEMANGIOL [Suspect]
     Active Substance: PROPRANOLOL HYDROCHLORIDE
     Dosage: 1.5 MG/KG, (1.5MG/KG/24HOURS)
     Route: 048
     Dates: start: 20170927, end: 20170927
  3. HEMANGIOL [Suspect]
     Active Substance: PROPRANOLOL HYDROCHLORIDE
     Indication: INFANTILE HAEMANGIOMA
     Dosage: 0.5MG (0.25 MG/12HOURS)
     Route: 048
  4. HEMANGIOL [Suspect]
     Active Substance: PROPRANOLOL HYDROCHLORIDE
     Dosage: 1 MG/KG, (0.5MG/KG/12 HOURS)
     Route: 048
     Dates: start: 20170519, end: 20170521
  5. HEMANGIOL [Suspect]
     Active Substance: PROPRANOLOL HYDROCHLORIDE
     Dosage: 2 MG/KG, (1MG/KG/12 HOURS)
     Route: 048
     Dates: start: 20170522, end: 20170524
  6. HEMANGIOL [Suspect]
     Active Substance: PROPRANOLOL HYDROCHLORIDE
     Dosage: 7.2 MG (3.6MG/12HOURS)
     Route: 048
     Dates: start: 20170926
  7. HEMANGIOL [Suspect]
     Active Substance: PROPRANOLOL HYDROCHLORIDE
     Dosage: 3.5 MG, BID (2/DAY)
     Route: 048
     Dates: end: 20200630
  8. HEMANGIOL [Suspect]
     Active Substance: PROPRANOLOL HYDROCHLORIDE
     Dosage: 3 MG, (1.5MG/12HOURS)
     Route: 048
     Dates: start: 20170525, end: 20170912

REACTIONS (5)
  - Pyrexia [Recovered/Resolved]
  - Pyrexia [Recovered/Resolved]
  - Wheezing [Recovered/Resolved]
  - Asthma [Recovered/Resolved]
  - Cough [Recovered/Resolved]

NARRATIVE: CASE EVENT DATE: 20170910
